FAERS Safety Report 19647537 (Version 1)
Quarter: 2021Q3

REPORT INFORMATION
  Report Type: Spontaneous
  Country: US (occurrence: US)
  Receive Date: 20210802
  Receipt Date: 20210802
  Transmission Date: 20211014
  Serious: Yes (Other)
  Sender: FDA-Public Use
  Company Number: US-PURDUE-USA-2020-0277207

PATIENT
  Sex: Female

DRUGS (1)
  1. OXYCONTIN [Suspect]
     Active Substance: OXYCODONE HYDROCHLORIDE
     Indication: PAIN
     Dosage: 180 OXYCONTIN 80 MG PER MONTH
     Route: 048

REACTIONS (4)
  - Intervertebral disc disorder [Unknown]
  - Drug dependence [Unknown]
  - Nerve injury [Unknown]
  - Overdose [Unknown]
